FAERS Safety Report 5880329-0 (Version None)
Quarter: 2008Q3

REPORT INFORMATION
  Report Type: 
  Country: None (occurrence: None)
  Receive Date: 20080912
  Receipt Date: 20080905
  Transmission Date: 20090109
  Serious: Yes (Other)
  Sender: FDA-Public Use
  Company Number: US-B.I. PHARMACEUTICALS,INC./RIDGEFIELD-2008-BP-13755BP

PATIENT
  Sex: Female

DRUGS (1)
  1. MIRAPEX [Suspect]

REACTIONS (4)
  - BLINDNESS [None]
  - GLAUCOMA [None]
  - INCONTINENCE [None]
  - NEUROPATHY PERIPHERAL [None]
